FAERS Safety Report 8677692 (Version 6)
Quarter: 2013Q1

REPORT INFORMATION
  Report Type: Spontaneous
  Country: US (occurrence: None)
  Receive Date: 20120705
  Receipt Date: 20130328
  Transmission Date: 20140127
  Serious: Yes (Hospitalization, Other)
  Sender: FDA-Public Use
  Company Number: CIP11002940

PATIENT
  Age: 87 Year
  Sex: Female
  Weight: 63.5 kg

DRUGS (15)
  1. ACTONEL (RISEDRONATE SODIUM) TABLET [Suspect]
     Indication: OSTEOPOROSIS
     Dosage: UNKNOWN DOSAGE/ONCE MONTHLY, ORAL
     Dates: start: 2010, end: 2010
  2. FOSAMAX (ALENDRONATE SODIUM) [Suspect]
     Indication: OSTEOPOROSIS
     Dosage: UNK, 1/WEEK, ORAL
     Route: 048
     Dates: start: 200402
  3. ALENDRONATE SODIUM [Suspect]
     Indication: OSTEOPOROSIS
     Dosage: 70 MG, 1 /WEEK, ORAL
     Route: 048
     Dates: start: 20091204
  4. SYNTHROID [Concomitant]
  5. B COMPLEX WITH VITAMIN C  (VITAMIN B COMPLEX/ASCORBIC ACID) [Concomitant]
  6. ASPRIN (ACETYLSALICYLIC ACID) [Concomitant]
  7. COD LIVER OIL (COD LIVER OIL) [Concomitant]
  8. GLUCOSAMINE (GLUCOSAMINE) [Concomitant]
  9. WHEAT GERM OIL (TRITICUM AESTIVUM GERM OIL) [Concomitant]
  10. CENTRUM SILVER (MULTIVITAMIN) [Concomitant]
  11. CALCIUM (CALCIUM) [Concomitant]
  12. BORON (BORON) [Concomitant]
  13. MAGNESIUM (MAGNESIUM) [Concomitant]
  14. VITAMIN D (COLECALCIFEROL) [Concomitant]
  15. ACTONEL [Suspect]
     Indication: OSTEOPOROSIS
     Route: 048
     Dates: start: 200402, end: 200402

REACTIONS (8)
  - Fall [None]
  - Femur fracture [None]
  - Pathological fracture [None]
  - Stress fracture [None]
  - Atypical femur fracture [None]
  - Sciatica [None]
  - Bone cyst [None]
  - Pain in extremity [None]
